FAERS Safety Report 14994182 (Version 2)
Quarter: 2018Q3

REPORT INFORMATION
  Report Type: Spontaneous
  Country: CZ (occurrence: CZ)
  Receive Date: 20180611
  Receipt Date: 20180702
  Transmission Date: 20181010
  Serious: Yes (Other)
  Sender: FDA-Public Use
  Company Number: CZ-009507513-1806CZE002822

PATIENT
  Age: 72 Year
  Sex: Male

DRUGS (2)
  1. AERIUS [Suspect]
     Active Substance: DESLORATADINE
     Dosage: 5 MG, UNK
     Route: 048
     Dates: start: 20180403, end: 20180418
  2. SYMBICORT [Concomitant]
     Active Substance: BUDESONIDE\FORMOTEROL FUMARATE DIHYDRATE
     Dosage: UNK

REACTIONS (5)
  - Anger [Recovered/Resolved]
  - Abnormal behaviour [Recovered/Resolved]
  - Communication disorder [Recovered/Resolved]
  - Taciturnity [Recovered/Resolved]
  - Aggression [Recovered/Resolved]
